FAERS Safety Report 6254668-8 (Version None)
Quarter: 2009Q3

REPORT INFORMATION
  Report Type: 
  Country: None (occurrence: None)
  Receive Date: 20090702
  Receipt Date: 20090626
  Transmission Date: 20100115
  Serious: Yes (Hospitalization)
  Sender: FDA-Public Use
  Company Number: US-B.I. PHARMACEUTICALS,INC./RIDGEFIELD-2009-BP-07761BP

PATIENT
  Sex: Male

DRUGS (9)
  1. MIRAPEX [Suspect]
     Indication: RESTLESS LEGS SYNDROME
     Dosage: 1.5 MG
     Route: 048
     Dates: start: 20090201, end: 20090616
  2. DILTIAZEM [Concomitant]
     Indication: HYPERTENSION
  3. NITROGLYCERIN [Concomitant]
     Indication: CORONARY ARTERY DISEASE
  4. POTASSIUM CHLORIDE [Concomitant]
     Indication: CORONARY ARTERY DISEASE
  5. FUROSEMIDE INTENSOL [Concomitant]
     Indication: CORONARY ARTERY DISEASE
  6. WARFARIN [Concomitant]
     Indication: CARDIAC OPERATION
  7. ENALAPRIL MALEATE [Concomitant]
     Indication: HYPERTENSION
  8. DIGOXIN [Concomitant]
     Indication: CORONARY ARTERY DISEASE
  9. CITALOPRAM HYDROBROMIDE [Concomitant]
     Indication: DEPRESSION

REACTIONS (4)
  - DIZZINESS [None]
  - NAUSEA [None]
  - NERVOUSNESS [None]
  - PNEUMONIA [None]
